FAERS Safety Report 7529152-1 (Version None)
Quarter: 2011Q2

REPORT INFORMATION
  Report Type: 
  Country: None (occurrence: None)
  Receive Date: 20110520
  Receipt Date: 20110303
  Transmission Date: 20111010
  Serious: No
  Sender: FDA-Public Use
  Company Number: 028789

PATIENT
  Sex: Male

DRUGS (2)
  1. ANTIPSYCHOTICS [Concomitant]
  2. LACOSAMIDE [Suspect]

REACTIONS (1)
  - LIVER FUNCTION TEST ABNORMAL [None]
